FAERS Safety Report 9878910 (Version 2)
Quarter: 2014Q1

REPORT INFORMATION
  Report Type: Spontaneous
  Country: FR (occurrence: FR)
  Receive Date: 20140206
  Receipt Date: 20140207
  Transmission Date: 20141002
  Serious: Yes (Death, Hospitalization)
  Sender: FDA-Public Use
  Company Number: FR-B.I. PHARMACEUTICALS,INC./RIDGEFIELD-2014-BI-05318FF

PATIENT
  Age: 60 Year
  Sex: Female

DRUGS (4)
  1. PRADAXA [Suspect]
     Indication: ATRIAL FIBRILLATION
     Dosage: 220 MG
     Route: 048
     Dates: start: 201302, end: 20131212
  2. PAROXETINE BASE [Concomitant]
     Dosage: 20 MG
     Route: 048
  3. AMIODARONE [Concomitant]
     Route: 048
  4. OMEPRAZOLE [Concomitant]
     Dosage: 40 MG
     Route: 048

REACTIONS (3)
  - Shock haemorrhagic [Fatal]
  - Gastrointestinal haemorrhage [Fatal]
  - Metrorrhagia [Fatal]
